FAERS Safety Report 22160441 (Version 1)
Quarter: 2023Q1

REPORT INFORMATION
  Report Type: Spontaneous
  Country: US (occurrence: None)
  Receive Date: 20230330
  Receipt Date: 20230330
  Transmission Date: 20230417
  Serious: No
  Sender: FDA-Public Use
  Company Number: None

PATIENT
  Age: 75 Year
  Sex: Female
  Weight: 64.41 kg

DRUGS (13)
  1. CAPECITABINE [Suspect]
     Active Substance: CAPECITABINE
     Indication: Breast cancer female
     Dosage: OTHER QUANTITY : 1500-2000MG;?FREQUENCY : TWICE A DAY;?
     Route: 048
     Dates: start: 202301
  2. COENZYME Q10 [Concomitant]
     Active Substance: DIETARY SUPPLEMENT\UBIDECARENONE
  3. CRESTOR [Concomitant]
  4. FLONASE [Concomitant]
     Active Substance: FLUTICASONE PROPIONATE
  5. GLUCOSAMINE [Concomitant]
  6. IBUPROFEN [Concomitant]
     Active Substance: IBUPROFEN
  7. LEXAPRO [Concomitant]
     Active Substance: ESCITALOPRAM OXALATE
  8. MECLIZINE [Concomitant]
     Active Substance: MECLIZINE HYDROCHLORIDE
  9. MULTIPLEVITAMIN [Concomitant]
  10. CHONDROITIN SULFATE A\GLUCOSAMINE [Concomitant]
     Active Substance: CHONDROITIN SULFATE A\GLUCOSAMINE
  11. POTASSIUM [Concomitant]
     Active Substance: POTASSIUM
  12. PREDNISONE [Concomitant]
     Active Substance: PREDNISONE
  13. PROCHLORPERAZINE [Concomitant]

REACTIONS (2)
  - Fatigue [None]
  - White blood cell count decreased [None]
